FAERS Safety Report 4980190-2 (Version None)
Quarter: 2006Q2

REPORT INFORMATION
  Report Type: 
  Country: None (occurrence: None)
  Receive Date: 20060424
  Receipt Date: 20050815
  Transmission Date: 20061013
  Serious: Yes (Hospitalization)
  Sender: FDA-Public Use
  Company Number: GB-NOVOPROD-246318

PATIENT
  Age: 74 Year
  Sex: Male
  Weight: 113 kg

DRUGS (7)
  1. LEVEMIR [Suspect]
     Indication: DIABETES MELLITUS
  2. SIMVASTATIN [Concomitant]
     Dosage: 20 MG, QD
     Route: 048
     Dates: start: 19800101
  3. FRUSEMIDE [Concomitant]
     Dosage: 40 MG, QD
     Route: 048
     Dates: start: 19800101
  4. AMLODIPINE [Concomitant]
     Dosage: 5 MG, QD
     Route: 048
  5. ENALAPRIL MALEATE [Concomitant]
     Dosage: 20 MG, QD
     Route: 048
     Dates: start: 19800101
  6. ASPIRIN [Concomitant]
     Dosage: 75 MG, QD
     Route: 048
     Dates: start: 19800101
  7. FLUOXETINE [Concomitant]
     Dosage: 20 MG, QD
     Route: 048

REACTIONS (3)
  - CHEST PAIN [None]
  - DYSPNOEA [None]
  - FALL [None]
